FAERS Safety Report 9700692 (Version 2)
Quarter: 2013Q4

REPORT INFORMATION
  Report Type: Spontaneous
  Country: IT (occurrence: IT)
  Receive Date: 20131121
  Receipt Date: 20131204
  Transmission Date: 20140711
  Serious: Yes (Hospitalization)
  Sender: FDA-Public Use
  Company Number: PHHY2013IT132833

PATIENT
  Age: 66 Year
  Sex: Male

DRUGS (4)
  1. TOLEP [Suspect]
     Indication: EPILEPSY
     Dosage: 600 MG, QD
     Route: 048
     Dates: start: 20101001, end: 20131003
  2. TOLEP [Suspect]
     Dosage: 300 MG, DAILY
     Route: 048
     Dates: start: 20131007
  3. RAMIPRIL [Suspect]
     Indication: HYPERTENSION
     Dosage: 5 MG, DAILY
     Route: 048
     Dates: start: 20101001, end: 20131003
  4. CITALOPRAM [Suspect]
     Dosage: 10 DRP, DAILY
     Route: 048
     Dates: start: 20101001, end: 20131003

REACTIONS (4)
  - Cardiac arrest [Recovered/Resolved]
  - Bradycardia [Recovered/Resolved]
  - Syncope [Unknown]
  - Pulse absent [Unknown]
